FAERS Safety Report 18032495 (Version 1)
Quarter: 2020Q3

REPORT INFORMATION
  Report Type: Spontaneous
  Country: US (occurrence: US)
  Receive Date: 20200716
  Receipt Date: 20200716
  Transmission Date: 20201103
  Serious: No
  Sender: FDA-Public Use
  Company Number: US-APOTEX-2020AP011674

PATIENT
  Sex: Female
  Weight: 73.94 kg

DRUGS (1)
  1. ATORVASTATIN CALCIUM. [Suspect]
     Active Substance: ATORVASTATIN CALCIUM
     Indication: PRODUCT USED FOR UNKNOWN INDICATION
     Dosage: 20 MG, QD
     Route: 048
     Dates: end: 20200516

REACTIONS (4)
  - Middle insomnia [Unknown]
  - Product substitution issue [Unknown]
  - Myalgia [Recovering/Resolving]
  - Influenza like illness [Unknown]
